FAERS Safety Report 19223682 (Version 1)
Quarter: 2021Q2

REPORT INFORMATION
  Report Type: Spontaneous
  Country: US (occurrence: US)
  Receive Date: 20210505
  Receipt Date: 20210505
  Transmission Date: 20210717
  Serious: No
  Sender: FDA-Public Use
  Company Number: US-ROCHE-2762893

PATIENT
  Sex: Female

DRUGS (6)
  1. ADVIL [Concomitant]
     Active Substance: IBUPROFEN
  2. SINGULAIR [Concomitant]
     Active Substance: MONTELUKAST SODIUM
  3. ESBRIET [Suspect]
     Active Substance: PIRFENIDONE
     Indication: IDIOPATHIC PULMONARY FIBROSIS
     Dosage: TAKE 1 TABLET BY MOUTH THREE TIMES A DAY WITH MEALS
     Route: 048
     Dates: start: 20200626
  4. LISINOPRIL. [Concomitant]
     Active Substance: LISINOPRIL
  5. SYMBICORT [Concomitant]
     Active Substance: BUDESONIDE\FORMOTEROL FUMARATE DIHYDRATE
  6. ESBRIET [Suspect]
     Active Substance: PIRFENIDONE
     Indication: IDIOPATHIC PULMONARY FIBROSIS
     Dosage: 2 CAPS PER DAY OF ESBRIET
     Route: 048
     Dates: start: 202101

REACTIONS (1)
  - Gastric disorder [Not Recovered/Not Resolved]
